FAERS Safety Report 5537673-6 (Version None)
Quarter: 2007Q4

REPORT INFORMATION
  Report Type: 
  Country: None (occurrence: None)
  Receive Date: 20071207
  Receipt Date: 20071128
  Transmission Date: 20080405
  Serious: Yes (Other)
  Sender: FDA-Public Use
  Company Number: US-ROCHE-516119

PATIENT
  Age: 49 Year
  Sex: Female
  Weight: 70.9 kg

DRUGS (6)
  1. PEG-INTERFERON ALFA 2A (RO 25-8310) [Suspect]
     Indication: HEPATITIS C
     Route: 058
     Dates: start: 20070427, end: 20070908
  2. BLINDED VX-950 [Suspect]
     Indication: HEPATITIS C
     Route: 048
     Dates: start: 20070427, end: 20070821
  3. ATARAX [Concomitant]
     Route: 048
     Dates: start: 20070720
  4. FLUOCINONIDE [Concomitant]
     Indication: PRURITUS
     Route: 061
     Dates: start: 20070727
  5. TRIAMCINOLONE [Concomitant]
  6. TYLENOL [Concomitant]
     Dosage: FREQUENCY: AS REQUIRED.

REACTIONS (2)
  - MIGRAINE WITH AURA [None]
  - RASH [None]
